FAERS Safety Report 6070834-9 (Version None)
Quarter: 2009Q1

REPORT INFORMATION
  Report Type: 
  Country: None (occurrence: None)
  Receive Date: 20090209
  Receipt Date: 20080828
  Transmission Date: 20090719
  Serious: No
  Sender: FDA-Public Use
  Company Number: A0744933A

PATIENT
  Age: 47 Year
  Sex: Male

DRUGS (3)
  1. PAROXETINE HCL [Suspect]
     Indication: DEPRESSION
     Dosage: 80MG PER DAY
     Route: 048
     Dates: start: 20080501
  2. CLONAZEPAM [Concomitant]
  3. HYDROXAZEPAM [Concomitant]

REACTIONS (5)
  - ABNORMAL DREAMS [None]
  - DRUG INEFFECTIVE [None]
  - DYSKINESIA [None]
  - MEMORY IMPAIRMENT [None]
  - SOMNOLENCE [None]
